FAERS Safety Report 6571164-9 (Version None)
Quarter: 2010Q1

REPORT INFORMATION
  Report Type: 
  Country: None (occurrence: None)
  Receive Date: 20100204
  Receipt Date: 20100125
  Transmission Date: 20100710
  Serious: Yes (Disabling)
  Sender: FDA-Public Use
  Company Number: GB-GILEAD-2009-0025696

PATIENT
  Sex: Male
  Weight: 85 kg

DRUGS (5)
  1. ATRIPLA [Suspect]
     Indication: DRUG USE FOR UNKNOWN INDICATION
     Route: 048
     Dates: start: 20090528, end: 20090626
  2. COMBIVIR [Concomitant]
  3. SUSTIVA [Concomitant]
  4. PREGABALIN [Concomitant]
     Indication: NEUROPATHY PERIPHERAL
     Route: 048
     Dates: start: 20090811
  5. VALACYCLOVIR HCL [Concomitant]
     Indication: HERPES ZOSTER
     Route: 048
     Dates: start: 20090706

REACTIONS (8)
  - AGGRESSION [None]
  - DECREASED APPETITE [None]
  - DEPRESSION [None]
  - DIZZINESS [None]
  - FATIGUE [None]
  - HALLUCINATION [None]
  - HEADACHE [None]
  - PARANOIA [None]
